FAERS Safety Report 5022865-5 (Version None)
Quarter: 2006Q2

REPORT INFORMATION
  Report Type: 
  Country: None (occurrence: None)
  Receive Date: 20060426
  Receipt Date: 20060321
  Transmission Date: 20061013
  Serious: Yes (Other)
  Sender: FDA-Public Use
  Company Number: 2006041527

PATIENT
  Age: 50 Year
  Sex: Female

DRUGS (7)
  1. LYRICA [Suspect]
     Indication: ILL-DEFINED DISORDER
     Dosage: (25 MG)
     Dates: start: 20060301
  2. ALCOHOL (ETHANOL) [Suspect]
     Indication: ILL-DEFINED DISORDER
     Dates: start: 20060320
  3. TRAZODONE HCL [Concomitant]
  4. FLEXERIL [Concomitant]
  5. EFFEXOR XR [Concomitant]
  6. CYMBALTA [Concomitant]
  7. VISTARIL (HYDROXYZINE EMBONATE) [Concomitant]

REACTIONS (1)
  - ALCOHOL INTOLERANCE [None]
